FAERS Safety Report 7565845-8 (Version None)
Quarter: 2011Q2

REPORT INFORMATION
  Report Type: 
  Country: None (occurrence: None)
  Receive Date: 20110623
  Receipt Date: 20110616
  Transmission Date: 20111010
  Serious: No
  Sender: FDA-Public Use
  Company Number: US-PFIZER INC-2011133183

PATIENT
  Sex: Female
  Weight: 62.132 kg

DRUGS (2)
  1. ZMAX [Suspect]
     Indication: RESPIRATORY TRACT CONGESTION
     Dosage: UNK
     Route: 048
     Dates: start: 20110525, end: 20110525
  2. ZMAX [Suspect]
     Indication: BACTERIAL INFECTION

REACTIONS (2)
  - DRY SKIN [None]
  - RASH [None]
